FAERS Safety Report 5638078-X (Version None)
Quarter: 2008Q1

REPORT INFORMATION
  Report Type: 
  Country: None (occurrence: None)
  Receive Date: 20080222
  Receipt Date: 20080222
  Transmission Date: 20080703
  Serious: No
  Sender: FDA-Public Use
  Company Number: None

PATIENT
  Age: 15 Year
  Sex: Male
  Weight: 32 kg

DRUGS (2)
  1. BOTOX    400 [Suspect]
     Indication: MUSCLE DISORDER
     Dosage: 200 UNITS  2X  IM
     Route: 030
     Dates: start: 20070226, end: 20070226
  2. VERSED [Suspect]

REACTIONS (8)
  - DYSPHAGIA [None]
  - MOVEMENT DISORDER [None]
  - MUSCLE DISORDER [None]
  - MUSCLE RIGIDITY [None]
  - MUSCULOSKELETAL STIFFNESS [None]
  - MYALGIA [None]
  - PAIN [None]
  - PROCEDURAL PAIN [None]
